FAERS Safety Report 7969705-X (Version None)
Quarter: 2011Q4

REPORT INFORMATION
  Report Type: 
  Country: None (occurrence: None)
  Receive Date: 20111212
  Receipt Date: 20111129
  Transmission Date: 20120403
  Serious: Yes (Hospitalization)
  Sender: FDA-Public Use
  Company Number: AU-JNJFOC-20110909312

PATIENT
  Sex: Female
  Weight: 70.5 kg

DRUGS (2)
  1. CARBAMAZEPINE [Concomitant]
     Indication: EPILEPSY
     Dates: end: 20111023
  2. INVEGA SUSTENNA [Suspect]
     Indication: SCHIZOPHRENIA
     Route: 030
     Dates: start: 20110323, end: 20111005

REACTIONS (1)
  - EMOTIONAL DISTRESS [None]
